FAERS Safety Report 8555983-5 (Version None)
Quarter: 2012Q3

REPORT INFORMATION
  Report Type: 
  Country: None (occurrence: None)
  Receive Date: 20120801
  Receipt Date: 20101227
  Transmission Date: 20120928
  Serious: Yes (Hospitalization)
  Sender: FDA-Public Use
  Company Number: US-BAYER-201028694NA

PATIENT
  Age: 46 Year
  Sex: Female
  Weight: 82 kg

DRUGS (15)
  1. WELLBUTRIN [Concomitant]
  2. MULTI-VITAMINS [Concomitant]
  3. HERBAL PREPARATION [Concomitant]
  4. CELEXA [Concomitant]
  5. NORCO [Concomitant]
  6. COUMADIN [Concomitant]
     Dosage: 2.5 MG, CONT
  7. TPN [Concomitant]
  8. IBUPROFEN [Concomitant]
  9. BEXTRA [Concomitant]
  10. YASMIN [Suspect]
     Dosage: UNK UNK, QD
     Route: 048
     Dates: start: 20020401, end: 20020909
  11. FLAGYL [Concomitant]
  12. NEURONTIN [Concomitant]
  13. MOTRIN [Concomitant]
  14. TYLENOL ES [Concomitant]
  15. HYDROCODONE BITARTRATE [Concomitant]

REACTIONS (9)
  - FATIGUE [None]
  - SYNCOPE [None]
  - DYSPNOEA [None]
  - OEDEMA PERIPHERAL [None]
  - PULMONARY EMBOLISM [None]
  - PLEURITIC PAIN [None]
  - PAIN IN EXTREMITY [None]
  - CHEST PAIN [None]
  - MUSCLE SPASMS [None]
